FAERS Safety Report 19856178 (Version 1)
Quarter: 2021Q3

REPORT INFORMATION
  Report Type: Spontaneous
  Country: CA (occurrence: CA)
  Receive Date: 20210920
  Receipt Date: 20210920
  Transmission Date: 20211014
  Serious: Yes (Hospitalization)
  Sender: FDA-Public Use
  Company Number: CA-TEVA-2021-CA-1953495

PATIENT
  Age: 16 Year
  Sex: Female

DRUGS (6)
  1. QUETIAPINE XR [Suspect]
     Active Substance: QUETIAPINE
     Dosage: 100 MILLIGRAM DAILY;
     Route: 065
  2. RISPERIDONE. [Interacting]
     Active Substance: RISPERIDONE
     Dosage: 1.5 MILLIGRAM DAILY;
     Route: 065
  3. VITAMIN D [Concomitant]
     Active Substance: VITAMIN D NOS
  4. TRETINOIN. [Concomitant]
     Active Substance: TRETINOIN
  5. ALESSE 28 [Concomitant]
     Active Substance: ETHINYL ESTRADIOL\LEVONORGESTREL
  6. PEG 3350 [Concomitant]
     Active Substance: POLYETHYLENE GLYCOL 3350

REACTIONS (4)
  - Drug ineffective [Recovered/Resolved]
  - Galactorrhoea [Recovered/Resolved]
  - Potentiating drug interaction [Recovered/Resolved]
  - Neutropenia [Recovered/Resolved]
